FAERS Safety Report 13505258 (Version 1)
Quarter: 2017Q2

REPORT INFORMATION
  Report Type: Spontaneous
  Country: US (occurrence: US)
  Receive Date: 20170502
  Receipt Date: 20170502
  Transmission Date: 20170830
  Serious: Yes (Hospitalization)
  Sender: FDA-Public Use
  Company Number: US-AMNEAL PHARMACEUTICALS-2017AMN00548

PATIENT
  Age: 58 Year
  Sex: Female
  Weight: 79.37 kg

DRUGS (3)
  1. GABAPENTIN. [Suspect]
     Active Substance: GABAPENTIN
     Indication: COMPLEX REGIONAL PAIN SYNDROME
     Dosage: 300 MG, 3X/DAY (1 AT NOON AND 2 AT NIGHT)
     Dates: start: 2016, end: 201704
  2. LYRICA [Concomitant]
     Active Substance: PREGABALIN
     Indication: COMPLEX REGIONAL PAIN SYNDROME
  3. HYDROCODONE [Concomitant]
     Active Substance: HYDROCODONE
     Indication: COMPLEX REGIONAL PAIN SYNDROME
     Dosage: UNK
     Dates: end: 201704

REACTIONS (3)
  - Off label use [Unknown]
  - Loss of consciousness [Recovered/Resolved]
  - Drug ineffective [Unknown]

NARRATIVE: CASE EVENT DATE: 20170101
